FAERS Safety Report 15134498 (Version 3)
Quarter: 2018Q3

REPORT INFORMATION
  Report Type: Spontaneous
  Country: US (occurrence: US)
  Receive Date: 20180712
  Receipt Date: 20180911
  Transmission Date: 20181010
  Serious: No
  Sender: FDA-Public Use
  Company Number: US-GLAXOSMITHKLINE-US2018117978

PATIENT
  Age: 84 Year
  Sex: Female

DRUGS (2)
  1. ABREVA [Suspect]
     Active Substance: DOCOSANOL
     Dosage: UNK
  2. ABREVA [Suspect]
     Active Substance: DOCOSANOL
     Indication: ORAL HERPES
     Dosage: UNK, USED 5 TIMES IN A DAY

REACTIONS (5)
  - Drug ineffective [Unknown]
  - Incorrect drug administration duration [Unknown]
  - Application site scar [Unknown]
  - Product quality issue [Unknown]
  - Application site scab [Unknown]
